FAERS Safety Report 8033176-8 (Version None)
Quarter: 2012Q1

REPORT INFORMATION
  Report Type: 
  Country: None (occurrence: None)
  Receive Date: 20120110
  Receipt Date: 20120104
  Transmission Date: 20120608
  Serious: Yes (Hospitalization)
  Sender: FDA-Public Use
  Company Number: US-BAYER-2012-002238

PATIENT
  Age: 25 Year
  Sex: Female
  Weight: 54.875 kg

DRUGS (11)
  1. NEXIUM [Concomitant]
     Dosage: 40 MG, UNK
     Route: 048
  2. SUCRALFATE [Concomitant]
     Route: 048
  3. YAZ [Suspect]
     Indication: CONTRACEPTION
     Dosage: UNK
     Route: 048
     Dates: start: 20080101, end: 20091101
  4. YAZ [Suspect]
     Indication: PREMENSTRUAL SYNDROME
  5. YAZ [Suspect]
  6. VITAMIN C [Concomitant]
     Dosage: UNK
     Route: 048
     Dates: start: 19980101
  7. KETOCONAZOLE [Concomitant]
     Route: 061
  8. SERTRALINE HYDROCHLORIDE [Concomitant]
     Indication: PREMENSTRUAL SYNDROME
     Dosage: 50 MG, UNK
     Route: 048
     Dates: start: 20091001, end: 20101001
  9. AMOXICILLIN AND CLAVULANATE POTASSIUM [Concomitant]
     Route: 048
  10. MUCINEX DM [Concomitant]
     Route: 048
  11. MULTI-VITAMIN [Concomitant]
     Dosage: UNK
     Route: 048
     Dates: start: 20040101

REACTIONS (5)
  - ABDOMINAL PAIN [None]
  - DYSPEPSIA [None]
  - CHOLECYSTITIS CHRONIC [None]
  - GALLBLADDER DISORDER [None]
  - PROCEDURAL PAIN [None]
